FAERS Safety Report 14684469 (Version 2)
Quarter: 2018Q2

REPORT INFORMATION
  Report Type: Report from Study
  Country: None (occurrence: AU)
  Receive Date: 20180327
  Receipt Date: 20180402
  Transmission Date: 20180711
  Serious: Yes (Other)
  Sender: FDA-Public Use
  Company Number: AU-ABBVIE-18P-008-2298427-00

PATIENT
  Age: 74 Year

DRUGS (34)
  1. ALLOPURINOL. [Concomitant]
     Active Substance: ALLOPURINOL
     Indication: PROPHYLAXIS
     Dates: start: 20180224, end: 20180313
  2. FRUSEMIDE [Concomitant]
     Active Substance: FUROSEMIDE
     Dates: start: 20180316, end: 20180316
  3. FRUSEMIDE [Concomitant]
     Active Substance: FUROSEMIDE
     Dates: start: 20180317, end: 20180317
  4. FRUSEMIDE [Concomitant]
     Active Substance: FUROSEMIDE
     Dates: start: 20180318, end: 20180318
  5. NYSTATIN. [Concomitant]
     Active Substance: NYSTATIN
     Indication: ANTIFUNGAL PROPHYLAXIS
     Dates: start: 20180313
  6. PHYTOMENADIONE [Concomitant]
     Active Substance: PHYTONADIONE
     Indication: PRODUCT USED FOR UNKNOWN INDICATION
     Dates: start: 20180320
  7. VALACICLOVIR [Concomitant]
     Active Substance: VALACYCLOVIR HYDROCHLORIDE
     Indication: PRODUCT USED FOR UNKNOWN INDICATION
     Dates: start: 20180224
  8. DEXAMETHASONE. [Concomitant]
     Active Substance: DEXAMETHASONE
     Indication: CHEMOTHERAPY
     Dates: start: 20180305, end: 20180309
  9. IDARUBACIN [Concomitant]
     Indication: ACUTE MYELOID LEUKAEMIA
  10. VENETOCLAX. [Suspect]
     Active Substance: VENETOCLAX
     Indication: ACUTE MYELOID LEUKAEMIA
     Route: 048
     Dates: start: 20180226, end: 20180226
  11. VENETOCLAX. [Suspect]
     Active Substance: VENETOCLAX
     Route: 048
     Dates: start: 20180228, end: 20180228
  12. FRUSEMIDE [Concomitant]
     Active Substance: FUROSEMIDE
     Dates: start: 20180227, end: 20180227
  13. FRUSEMIDE [Concomitant]
     Active Substance: FUROSEMIDE
     Dates: start: 20180301
  14. SPIRONOLACTONE. [Concomitant]
     Active Substance: SPIRONOLACTONE
     Indication: FLUID OVERLOAD
     Dates: start: 20180324
  15. PENTROX [Concomitant]
     Indication: BIOPSY BONE MARROW
     Dates: start: 20180220, end: 20180220
  16. ONDANSETRON [Concomitant]
     Active Substance: ONDANSETRON
     Indication: CHEMOTHERAPY
     Dates: start: 20180305, end: 20180310
  17. MAGNESIUM [Concomitant]
     Active Substance: MAGNESIUM
     Indication: HYPOMAGNESAEMIA
     Dates: start: 20180312, end: 20180312
  18. VENETOCLAX. [Suspect]
     Active Substance: VENETOCLAX
     Route: 048
     Dates: start: 20180302, end: 20180311
  19. FRUSEMIDE [Concomitant]
     Active Substance: FUROSEMIDE
     Dates: start: 20180309, end: 20180309
  20. AMBISONE [Concomitant]
     Active Substance: AMPHOTERICIN B
     Indication: ANTIFUNGAL PROPHYLAXIS
     Dates: start: 20180302, end: 20180312
  21. MAGNESIUM [Concomitant]
     Active Substance: MAGNESIUM
     Dates: start: 20180316, end: 20180316
  22. POSACONAZOLE [Concomitant]
     Active Substance: POSACONAZOLE
     Indication: ANTIFUNGAL PROPHYLAXIS
     Dates: start: 20180312
  23. POSACONAZOLE [Concomitant]
     Active Substance: POSACONAZOLE
     Indication: PRODUCT USED FOR UNKNOWN INDICATION
     Dates: start: 20180312
  24. VENETOCLAX. [Suspect]
     Active Substance: VENETOCLAX
     Route: 048
     Dates: start: 20180227, end: 20180227
  25. VENETOCLAX. [Suspect]
     Active Substance: VENETOCLAX
     Route: 048
     Dates: start: 20180301, end: 20180301
  26. KCL [Concomitant]
     Active Substance: POTASSIUM CHLORIDE
     Indication: HYPOKALAEMIA
     Dates: start: 20180316
  27. POTASSIUM CHLORIDE. [Concomitant]
     Active Substance: POTASSIUM CHLORIDE
     Indication: ELECTROLYTE SUBSTITUTION THERAPY
     Dates: start: 20180321
  28. PETER MAC MOUTHWASH [Concomitant]
     Indication: PROPHYLAXIS
     Dates: start: 20180224
  29. FRUSEMIDE [Concomitant]
     Active Substance: FUROSEMIDE
     Indication: FLUID OVERLOAD
     Dates: start: 20180226, end: 20180226
  30. PIPERACILLIN AND TAZOBACTAM [Concomitant]
     Active Substance: PIPERACILLIN SODIUM\TAZOBACTAM SODIUM
     Indication: FEBRILE NEUTROPENIA
     Dates: start: 20180312, end: 20180318
  31. FRUSEMIDE [Concomitant]
     Active Substance: FUROSEMIDE
     Dates: start: 20180228, end: 20180228
  32. CYTARABINE. [Concomitant]
     Active Substance: CYTARABINE
     Indication: ACUTE MYELOID LEUKAEMIA
  33. FRUSEMIDE [Concomitant]
     Active Substance: FUROSEMIDE
     Indication: PRODUCT USED FOR UNKNOWN INDICATION
     Dates: start: 20180226
  34. NYSTATIN. [Concomitant]
     Active Substance: NYSTATIN
     Indication: PRODUCT USED FOR UNKNOWN INDICATION
     Dates: start: 20180313

REACTIONS (1)
  - Sepsis [Recovered/Resolved]

NARRATIVE: CASE EVENT DATE: 20180317
